FAERS Safety Report 22043985 (Version 1)
Quarter: 2023Q1

REPORT INFORMATION
  Report Type: Spontaneous
  Country: US (occurrence: US)
  Receive Date: 20230228
  Receipt Date: 20230228
  Transmission Date: 20230418
  Serious: Yes (Other)
  Sender: FDA-Public Use
  Company Number: US-NOVEN PHARMACEUTICALS, INC.-2023-NOV-US000093

PATIENT
  Age: 9 Year
  Sex: Male
  Weight: 30.4 kg

DRUGS (3)
  1. DAYTRANA [Suspect]
     Active Substance: METHYLPHENIDATE
     Indication: Attention deficit hyperactivity disorder
     Dosage: 10 MG, UNKNOWN
     Route: 062
     Dates: start: 202301
  2. DIVALPROEX SODIUM [Concomitant]
     Active Substance: DIVALPROEX SODIUM
     Indication: Seizure
     Dosage: UNK UNK, DAILY (1 TABLET IN THE MORNING / 2 TABLETS AT NIGHT)
     Route: 048
  3. CYPROHEPTADINE [Concomitant]
     Active Substance: CYPROHEPTADINE
     Indication: Weight increased
     Dosage: 4 MG, DAILY
     Route: 065

REACTIONS (8)
  - Product adhesion issue [Not Recovered/Not Resolved]
  - Device issue [Not Recovered/Not Resolved]
  - Device adhesion issue [Not Recovered/Not Resolved]
  - Device difficult to use [Not Recovered/Not Resolved]
  - Application site erythema [Not Recovered/Not Resolved]
  - Product administered at inappropriate site [Not Recovered/Not Resolved]
  - Product administration error [Not Recovered/Not Resolved]
  - Adhesive tape use [Not Recovered/Not Resolved]

NARRATIVE: CASE EVENT DATE: 20230101
